FAERS Safety Report 5671070-8 (Version None)
Quarter: 2008Q1

REPORT INFORMATION
  Report Type: 
  Country: None (occurrence: None)
  Receive Date: 20080318
  Receipt Date: 20080311
  Transmission Date: 20080703
  Serious: Yes (Hospitalization)
  Sender: FDA-Public Use
  Company Number: TR-ELI_LILLY_AND_COMPANY-TR200803002606

PATIENT
  Age: 43 Year
  Sex: Female

DRUGS (1)
  1. HUMALOG MIX 75/25 [Suspect]
     Indication: DIABETES MELLITUS
     Dosage: 20 U/MORNING  AND EVENING
     Route: 058
     Dates: start: 20080201, end: 20080101

REACTIONS (3)
  - BLOOD GLUCOSE INCREASED [None]
  - NERVE INJURY [None]
  - PAIN IN EXTREMITY [None]
